FAERS Safety Report 5576694-4 (Version None)
Quarter: 2007Q4

REPORT INFORMATION
  Report Type: 
  Country: None (occurrence: None)
  Receive Date: 20071228
  Receipt Date: 20071217
  Transmission Date: 20080405
  Serious: Yes (Life-Threatening, Hospitalization)
  Sender: FDA-Public Use
  Company Number: DK-AMGEN-US257611

PATIENT
  Sex: Male

DRUGS (2)
  1. ENBREL [Suspect]
     Indication: SPONDYLOARTHROPATHY
     Route: 058
     Dates: start: 20070619
  2. ARAVA [Concomitant]
     Indication: SPONDYLOARTHROPATHY
     Dosage: UNKNOWN
     Route: 048
     Dates: start: 20070619

REACTIONS (1)
  - PARAPHARYNGEAL ABSCESS [None]
